FAERS Safety Report 6985774-8 (Version None)
Quarter: 2010Q3

REPORT INFORMATION
  Report Type: 
  Country: None (occurrence: None)
  Receive Date: 20100915
  Receipt Date: 20100826
  Transmission Date: 20110219
  Serious: Yes (Hospitalization)
  Sender: FDA-Public Use
  Company Number: US-BAYER-201015603NA

PATIENT
  Age: 23 Year
  Sex: Female
  Weight: 86 kg

DRUGS (7)
  1. YAZ [Suspect]
     Indication: ORAL CONTRACEPTION
     Route: 048
     Dates: start: 20080121, end: 20080825
  2. CIPROFLOXACIN [Concomitant]
  3. AVELOX [Concomitant]
  4. MULTI-VITAMIN [Concomitant]
     Route: 048
  5. TRAMADOL HYDROCHLORIDE [Concomitant]
     Route: 048
     Dates: start: 20080201
  6. HYDROCODONE BITARTRATE AND ACETAMINOPHEN [Concomitant]
     Route: 048
     Dates: start: 20080226
  7. MIRENA [Concomitant]
     Indication: CONTRACEPTION
     Route: 015
     Dates: start: 20080901

REACTIONS (3)
  - ABDOMINAL PAIN UPPER [None]
  - CHOLECYSTITIS CHRONIC [None]
  - CHOLELITHIASIS [None]
